FAERS Safety Report 17494023 (Version 1)
Quarter: 2020Q1

REPORT INFORMATION
  Report Type: Report from Study
  Country: None (occurrence: US)
  Receive Date: 20200304
  Receipt Date: 20200304
  Transmission Date: 20200409
  Serious: Yes (Hospitalization, Other)
  Sender: FDA-Public Use
  Company Number: US-ABBVIE-19K-163-2980361-00

PATIENT
  Sex: Male

DRUGS (1)
  1. HUMIRA [Suspect]
     Active Substance: ADALIMUMAB
     Indication: RHEUMATOID ARTHRITIS
     Route: 058

REACTIONS (9)
  - Joint range of motion decreased [Unknown]
  - Rash papular [Unknown]
  - Thrombosis [Unknown]
  - Diabetes mellitus [Unknown]
  - Arthritis [Unknown]
  - Loss of consciousness [Unknown]
  - Knee arthroplasty [Recovering/Resolving]
  - Intervertebral disc degeneration [Unknown]
  - Post procedural complication [Unknown]

NARRATIVE: CASE EVENT DATE: 2018
